FAERS Safety Report 15857342 (Version 1)
Quarter: 2019Q1

REPORT INFORMATION
  Report Type: Spontaneous
  Country: SA (occurrence: SA)
  Receive Date: 20190123
  Receipt Date: 20190123
  Transmission Date: 20190417
  Serious: Yes (Other)
  Sender: FDA-Public Use
  Company Number: SA-009507513-1901SAU008403

PATIENT
  Age: 4 Year
  Sex: Male

DRUGS (2)
  1. SINGULAIR [Concomitant]
     Active Substance: MONTELUKAST SODIUM
  2. DESLORATADINE. [Suspect]
     Active Substance: DESLORATADINE
     Indication: PRODUCT USED FOR UNKNOWN INDICATION
     Dosage: 3 ML, UNK

REACTIONS (7)
  - Eye movement disorder [Unknown]
  - Anticholinergic syndrome [Unknown]
  - Extrapyramidal disorder [Unknown]
  - Thirst [Unknown]
  - Urinary retention [Unknown]
  - Mucosal dryness [Unknown]
  - Trismus [Unknown]
